FAERS Safety Report 4438679-0 (Version None)
Quarter: 2004Q3

REPORT INFORMATION
  Report Type: 
  Country: None (occurrence: None)
  Receive Date: 20040830
  Receipt Date: 20040830
  Transmission Date: 20050211
  Serious: Yes (Hospitalization)
  Sender: FDA-Public Use
  Company Number: None

PATIENT
  Age: 90 Year
  Sex: Male

DRUGS (1)
  1. COUMADIN [Suspect]
     Dosage: 5 MG-3 1/2 TABS S-M-F AND 3 TABS OTHER DAYS

REACTIONS (1)
  - COAGULOPATHY [None]
